FAERS Safety Report 8036898-8 (Version None)
Quarter: 2012Q1

REPORT INFORMATION
  Report Type: 
  Country: None (occurrence: None)
  Receive Date: 20120111
  Receipt Date: 20120102
  Transmission Date: 20120608
  Serious: Yes (Hospitalization)
  Sender: FDA-Public Use
  Company Number: FR-BRISTOL-MYERS SQUIBB COMPANY-16328320

PATIENT
  Age: 70 Year
  Sex: Male

DRUGS (6)
  1. LERCANIDIPINE [Suspect]
     Dates: start: 20000101
  2. EZETIMIBE [Suspect]
     Dates: start: 19950101
  3. FURADANTIN [Suspect]
     Dates: start: 20101101, end: 20101201
  4. IRBESARTAN AND HYDROCHLOROTHIAZIDE [Suspect]
     Dates: start: 20000101, end: 20110215
  5. ANAFRANIL [Suspect]
     Dates: start: 19950101
  6. XANAX [Suspect]
     Dates: start: 19950101

REACTIONS (2)
  - COLITIS MICROSCOPIC [None]
  - URTICARIA [None]
